FAERS Safety Report 5908732-0 (Version None)
Quarter: 2008Q4

REPORT INFORMATION
  Report Type: 
  Country: None (occurrence: None)
  Receive Date: 20081006
  Receipt Date: 20080926
  Transmission Date: 20090506
  Serious: Yes (Disabling)
  Sender: FDA-Public Use
  Company Number: B0538986A

PATIENT
  Age: 84 Year
  Sex: Female

DRUGS (8)
  1. AVANDAMET [Suspect]
     Dosage: 2MG TWICE PER DAY
     Route: 048
     Dates: start: 20070101, end: 20080922
  2. TANAKAN [Concomitant]
  3. SIMVASTATIN [Concomitant]
  4. PLAVIX [Concomitant]
  5. ZOLPIDEM [Concomitant]
  6. KARDEGIC [Concomitant]
  7. CONTALAX [Concomitant]
  8. NEO-MERCAZOLE TAB [Concomitant]

REACTIONS (5)
  - CYSTITIS [None]
  - DYSURIA [None]
  - PELVIC PAIN [None]
  - POLLAKIURIA [None]
  - URINARY TRACT INFECTION [None]
